FAERS Safety Report 5888081-X (Version None)
Quarter: 2008Q3

REPORT INFORMATION
  Report Type: 
  Country: None (occurrence: None)
  Receive Date: 20080918
  Receipt Date: 20080916
  Transmission Date: 20090109
  Serious: Yes (Life-Threatening)
  Sender: FDA-Public Use
  Company Number: US-MERCK-0809USA00474

PATIENT
  Age: 76 Year
  Sex: Female

DRUGS (4)
  1. ZETIA [Suspect]
     Indication: HYPERCHOLESTEROLAEMIA
     Route: 048
     Dates: start: 20030101
  2. ATENOLOL [Concomitant]
     Route: 065
  3. HYDROCHLOROTHIAZIDE [Concomitant]
     Route: 065
  4. AMITRIPTYLINE HYDROCHLORIDE [Concomitant]
     Route: 065

REACTIONS (2)
  - BREAST CANCER [None]
  - BREAST CANCER FEMALE [None]
